FAERS Safety Report 9462910 (Version 1)
Quarter: 2013Q3

REPORT INFORMATION
  Report Type: Spontaneous
  Country: PT (occurrence: None)
  Receive Date: 20130814
  Receipt Date: 20130814
  Transmission Date: 20140515
  Serious: Yes (Hospitalization)
  Sender: FDA-Public Use
  Company Number: IMP_06801_2013

PATIENT
  Age: 73 Year
  Sex: Male

DRUGS (1)
  1. DIGOXIN (DIGOXIN) [Suspect]
     Indication: PRODUCT USED FOR UNKNOWN INDICATION
     Dosage: DF

REACTIONS (10)
  - Psychomotor hyperactivity [None]
  - Hypotension [None]
  - Tachycardia [None]
  - Ventricular tachycardia [None]
  - Tachyarrhythmia [None]
  - Oliguria [None]
  - Leukocytosis [None]
  - Renal impairment [None]
  - Hyperthyroidism [None]
  - Toxicity to various agents [None]
